FAERS Safety Report 4845599-6 (Version None)
Quarter: 2005Q4

REPORT INFORMATION
  Report Type: 
  Country: None (occurrence: None)
  Receive Date: 20051201
  Receipt Date: 20051117
  Transmission Date: 20060501
  Serious: No
  Sender: FDA-Public Use
  Company Number: 05113003

PATIENT
  Age: 48 Year
  Sex: Male

DRUGS (1)
  1. ALFERON N INJECTION, 5 MILLION IU/ML, 1 ML, HEMISPHERX BIOPHARMA, INC. [Suspect]
     Indication: CONDYLOMA ACUMINATUM
     Dosage: 2.5 MILLION IU/DOSE;
     Dates: start: 20051001, end: 20051101

REACTIONS (4)
  - BLOOD CREATINE PHOSPHOKINASE INCREASED [None]
  - CHEST PAIN [None]
  - COSTOCHONDRITIS [None]
  - INFLUENZA LIKE ILLNESS [None]
